FAERS Safety Report 6639178-8 (Version None)
Quarter: 2010Q1

REPORT INFORMATION
  Report Type: 
  Country: None (occurrence: None)
  Receive Date: 20100317
  Receipt Date: 20100315
  Transmission Date: 20100710
  Serious: Yes (Disabling)
  Sender: FDA-Public Use
  Company Number: DE-MERCK-1001DEU00060

PATIENT
  Age: 59 Year
  Sex: Female
  Weight: 63 kg

DRUGS (10)
  1. TRUSOPT [Suspect]
     Indication: NORMAL TENSION GLAUCOMA
     Route: 047
     Dates: start: 20090328, end: 20090415
  2. TRUSOPT [Suspect]
     Route: 047
     Dates: start: 20090214, end: 20090327
  3. TRUSOPT [Suspect]
     Route: 047
     Dates: start: 20090416, end: 20090420
  4. TRUSOPT [Suspect]
     Indication: VENOUS OCCLUSION
     Route: 047
     Dates: start: 20090328, end: 20090415
  5. TRUSOPT [Suspect]
     Route: 047
     Dates: start: 20090214, end: 20090327
  6. TRUSOPT [Suspect]
     Route: 047
     Dates: start: 20090416, end: 20090420
  7. OMEPRAZOLE [Concomitant]
     Route: 048
     Dates: start: 20070101
  8. VASOTEC [Concomitant]
     Route: 048
     Dates: start: 20090209, end: 20090401
  9. ZOCOR [Concomitant]
     Route: 048
     Dates: start: 20090209, end: 20090501
  10. ASPIRIN [Concomitant]
     Route: 048
     Dates: start: 20080209

REACTIONS (3)
  - SCOTOMA [None]
  - VITREOUS FLOATERS [None]
  - VITREOUS OPACITIES [None]
